FAERS Safety Report 12193545 (Version 3)
Quarter: 2016Q3

REPORT INFORMATION
  Report Type: Spontaneous
  Country: US (occurrence: US)
  Receive Date: 20160320
  Receipt Date: 20160708
  Transmission Date: 20161109
  Serious: Yes (Hospitalization, Disabling)
  Sender: FDA-Public Use
  Company Number: US-ENDO PHARMACEUTICALS INC.-2016-001862

PATIENT
  Age: 40 Year
  Sex: Male
  Weight: 122.58 kg

DRUGS (15)
  1. ANDROGEL [Suspect]
     Active Substance: TESTOSTERONE
     Indication: ANDROGEN REPLACEMENT THERAPY
     Route: 065
     Dates: start: 201105, end: 201107
  2. DIOVAN HCT [Concomitant]
     Active Substance: HYDROCHLOROTHIAZIDE\VALSARTAN
     Indication: HYPERTENSION
     Route: 065
     Dates: start: 2009
  3. ASPIRIN. [Concomitant]
     Active Substance: ASPIRIN
     Indication: CARDIAC DISORDER
     Route: 065
     Dates: start: 2010
  4. SERTRALINE [Concomitant]
     Active Substance: SERTRALINE HYDROCHLORIDE
     Indication: DEPRESSION
     Route: 065
     Dates: start: 20110418, end: 2012
  5. TESTIM [Suspect]
     Active Substance: TESTOSTERONE
     Indication: ANDROGEN REPLACEMENT THERAPY
     Route: 062
     Dates: start: 201105, end: 201107
  6. BYSTOLIC [Concomitant]
     Active Substance: NEBIVOLOL HYDROCHLORIDE
     Indication: HYPERTENSION
     Route: 065
     Dates: start: 2010
  7. CARVEDILOL. [Concomitant]
     Active Substance: CARVEDILOL
     Indication: HYPERTENSION
     Route: 065
     Dates: start: 2010, end: 2014
  8. NITROSTAT [Concomitant]
     Active Substance: NITROGLYCERIN
     Indication: CORONARY ARTERY DISEASE
     Route: 065
     Dates: start: 201111
  9. VALSARTAN. [Concomitant]
     Active Substance: VALSARTAN
     Indication: HYPERTENSION
     Route: 065
     Dates: start: 2010
  10. DEPO-TESTOSTERONE [Suspect]
     Active Substance: TESTOSTERONE CYPIONATE
     Indication: ANDROGEN REPLACEMENT THERAPY
     Route: 065
     Dates: start: 2013
  11. ISOSORBIDE. [Concomitant]
     Active Substance: ISOSORBIDE
     Indication: CORONARY ARTERY DISEASE
     Route: 065
     Dates: start: 2010, end: 2014
  12. HCTZ [Concomitant]
     Active Substance: HYDROCHLOROTHIAZIDE
     Indication: HYPERTENSION
     Route: 065
     Dates: start: 2010
  13. LOSARTAN. [Concomitant]
     Active Substance: LOSARTAN
     Indication: HYPERTENSION
     Route: 065
     Dates: start: 2010
  14. ANDROGEL [Suspect]
     Active Substance: TESTOSTERONE
     Route: 065
     Dates: start: 201111, end: 201212
  15. PLAVIX [Concomitant]
     Active Substance: CLOPIDOGREL BISULFATE
     Indication: CORONARY ARTERY DISEASE
     Route: 065
     Dates: start: 2010

REACTIONS (3)
  - Cerebrovascular accident [Not Recovered/Not Resolved]
  - Cardiovascular disorder [Unknown]
  - Cerebrovascular accident [Not Recovered/Not Resolved]

NARRATIVE: CASE EVENT DATE: 20110718
